FAERS Safety Report 4330760-X (Version None)
Quarter: 2004Q1

REPORT INFORMATION
  Report Type: 
  Country: None (occurrence: None)
  Receive Date: 20040331
  Receipt Date: 20040318
  Transmission Date: 20041129
  Serious: Yes (Hospitalization)
  Sender: FDA-Public Use
  Company Number: 2004-IT-00045IT

PATIENT
  Age: 93 Year
  Sex: Female

DRUGS (2)
  1. CATAPRES-TTS-1 [Suspect]
     Indication: ESSENTIAL HYPERTENSION
     Dosage: 0.1 MG (2.5 MG, 1 IN 1 WK); TD
     Route: 062
     Dates: start: 20040308, end: 20040309
  2. ZANTAC (RANITIDINE HYDROCHLORIDE) (AMV) [Concomitant]

REACTIONS (2)
  - BRADYCARDIA [None]
  - DEPRESSED LEVEL OF CONSCIOUSNESS [None]
